FAERS Safety Report 22148955 (Version 1)
Quarter: 2023Q1

REPORT INFORMATION
  Report Type: Spontaneous
  Country: US (occurrence: US)
  Receive Date: 20230328
  Receipt Date: 20230328
  Transmission Date: 20230418
  Serious: Yes (Death, Other)
  Sender: FDA-Public Use
  Company Number: US-MALLINCKRODT-MNK202300597

PATIENT
  Age: 51 Year
  Sex: Female

DRUGS (3)
  1. NITRIC OXIDE [Suspect]
     Active Substance: NITRIC OXIDE
     Indication: Pulmonary hypertension
     Dosage: UNKNOWN (RESPIRATORY)
     Route: 055
  2. MILRINONE [Concomitant]
     Active Substance: MILRINONE
     Dosage: UNKNOWN (DRIP)
     Route: 041
  3. EPOPROSTENOL [Concomitant]
     Active Substance: EPOPROSTENOL
     Dosage: UNKNOWN

REACTIONS (3)
  - Death [Fatal]
  - Pulmonary hypertension [Unknown]
  - Product use issue [Unknown]
